FAERS Safety Report 8920663 (Version 1)
Quarter: 2012Q4

REPORT INFORMATION
  Report Type: Report from Study
  Country: FR (occurrence: FR)
  Receive Date: 20121121
  Receipt Date: 20121121
  Transmission Date: 20130627
  Serious: Yes (Hospitalization)
  Sender: FDA-Public Use
  Company Number: FR-ROCHE-CID000000002221969

PATIENT
  Age: 43 Year
  Sex: Male
  Weight: 61 kg

DRUGS (2)
  1. VISMODEGIB [Suspect]
     Indication: CHONDROSARCOMA
     Dosage: Date last administered : 17/Jul/2012
     Route: 048
     Dates: start: 20120119, end: 20120724
  2. VISMODEGIB [Suspect]
     Route: 048
     Dates: start: 20120806

REACTIONS (1)
  - Pulmonary embolism [Recovered/Resolved with Sequelae]
